FAERS Safety Report 9614864 (Version 1)
Quarter: 2013Q4

REPORT INFORMATION
  Report Type: Spontaneous
  Country: US (occurrence: US)
  Receive Date: 20131011
  Receipt Date: 20131011
  Transmission Date: 20140711
  Serious: No
  Sender: FDA-Public Use
  Company Number: US-PFIZER INC-2013289049

PATIENT
  Age: 70 Year
  Sex: Male

DRUGS (4)
  1. SUTENT [Suspect]
     Indication: RENAL CANCER METASTATIC
     Dosage: 25 MG, CYCLIC (DAILY THREE WEEKS ON AND ONE WEEK OFF)
     Dates: start: 20111101
  2. SUTENT [Suspect]
     Dosage: 25 MG, CYCLIC (DAILY FOUR WEEKS ON AND TWO WEEKS OFF)(C#1)
     Dates: start: 20120711, end: 20121010
  3. SUTENT [Suspect]
     Dosage: 25 MG, CYCLIC (THREE WEEKS ON AND ONE WEEK OFF )
     Dates: start: 201211
  4. VOTRIENT [Suspect]
     Indication: RENAL CANCER METASTATIC
     Dosage: 800 MG, DAILY

REACTIONS (1)
  - Fatigue [Unknown]
